FAERS Safety Report 4806577-6 (Version None)
Quarter: 2005Q4

REPORT INFORMATION
  Report Type: 
  Country: None (occurrence: None)
  Receive Date: 20051019
  Receipt Date: 20050929
  Transmission Date: 20060501
  Serious: Yes (Other)
  Sender: FDA-Public Use
  Company Number: USA0510109798

PATIENT
  Age: 60 Year
  Sex: Male

DRUGS (1)
  1. STRATTERA [Suspect]
     Dosage: 18 MG DAY

REACTIONS (2)
  - MOVEMENT DISORDER [None]
  - PARALYSIS FLACCID [None]
